FAERS Safety Report 11753669 (Version 2)
Quarter: 2016Q1

REPORT INFORMATION
  Report Type: Spontaneous
  Country: US (occurrence: US)
  Receive Date: 20151119
  Receipt Date: 20160121
  Transmission Date: 20160525
  Serious: No
  Sender: FDA-Public Use
  Company Number: US-PFIZER INC-2015378512

PATIENT
  Age: 33 Year
  Sex: Female
  Weight: 73.92 kg

DRUGS (15)
  1. BENADRYL [Concomitant]
     Active Substance: DIPHENHYDRAMINE HYDROCHLORIDE
     Dosage: 12.5 MG/5 ML ELIXIR, 1 TABLESPOON ORAL SWISH AND SPIT, 4X/DAY
     Route: 048
     Dates: start: 20151016
  2. COMPAZINE [Concomitant]
     Active Substance: PROCHLORPERAZINE MALEATE
     Indication: NAUSEA
     Dosage: 10 MG, AS NEEDED (1 TABLET EVERY 4-6 HOURS)
     Dates: start: 20151027
  3. XGEVA [Concomitant]
     Active Substance: DENOSUMAB
     Indication: METASTASES TO BONE
     Dosage: 120 MG, CYCLIC FOR EVERY 28 DAYS
     Dates: end: 20151221
  4. EMLA [Concomitant]
     Active Substance: LIDOCAINE\PRILOCAINE
     Dosage: 2.5-2.5 % CREAM, 2.5% TOPICAL TAKES AS DIRECTED
     Route: 061
     Dates: start: 20150622
  5. CALCIUM CARBONATE AND VITAMIN D [Concomitant]
     Dosage: 200 (500)-400MG-UNIT TABLET, 2X/DAY
     Route: 048
  6. COLACE [Concomitant]
     Active Substance: DOCUSATE SODIUM
     Dosage: 100 MG CAPSULE, 1 CAPSULE, 2X/DAY
     Route: 048
  7. MACROBID [Concomitant]
     Active Substance: NITROFURANTOIN\NITROFURANTOIN MONOHYDRATE
     Dosage: 100 MG, 2X/DAY
     Route: 048
     Dates: start: 20151103, end: 20151109
  8. LIDODERM [Concomitant]
     Active Substance: LIDOCAINE
     Dosage: 5% (700MG/PATCH), 1 PATCH TOPICAL EVERY 12 HOURS
     Route: 061
     Dates: start: 20151027
  9. ZYRTEC [Concomitant]
     Active Substance: CETIRIZINE HYDROCHLORIDE
     Indication: SEASONAL ALLERGY
     Dosage: 10 MG TABLET, 1 TABLET, DAILY
     Route: 048
  10. IBRANCE [Suspect]
     Active Substance: PALBOCICLIB
     Indication: BREAST CANCER METASTATIC
     Dosage: 125 MG, CYCLIC (ONCE DAILY FOR 21 DAYS OF 21-DAY CYCLE)
     Route: 048
     Dates: start: 20150727, end: 20151029
  11. FASLODEX [Concomitant]
     Active Substance: FULVESTRANT
     Indication: BREAST CANCER METASTATIC
     Dosage: 500 MG, CYCLIC (ONE TIME EVERY 28 DAYS)
     Route: 030
     Dates: end: 20151221
  12. TYLENOL EXTRA STRENGTH [Concomitant]
     Active Substance: ACETAMINOPHEN
     Dosage: 1000 MG (500 MG TABLET,  2 TABLETS AS NEEDED)
     Route: 048
  13. NORCO [Concomitant]
     Active Substance: ACETAMINOPHEN\HYDROCODONE BITARTRATE
     Indication: PAIN
     Dosage: 5-325 MG TABLET, 1 TABLET EVERY 6 HOURS AS NEEDED
     Dates: start: 20151124
  14. LUPRON [Concomitant]
     Active Substance: LEUPROLIDE ACETATE
     Indication: BREAST CANCER METASTATIC
     Dosage: 7.5 MG, CYCLIC FOR EVERY 28 DAYS
     Route: 030
     Dates: end: 20151221
  15. KEFLEX [Concomitant]
     Active Substance: CEPHALEXIN
     Dosage: 500 MG CAPSULE, 1 CAPSULE, 4X/DAY
     Route: 048
     Dates: start: 20151127, end: 20151203

REACTIONS (2)
  - Breast cancer metastatic [Unknown]
  - Disease progression [Unknown]

NARRATIVE: CASE EVENT DATE: 20151014
